FAERS Safety Report 5441324-9 (Version None)
Quarter: 2007Q3

REPORT INFORMATION
  Report Type: 
  Country: None (occurrence: None)
  Receive Date: 20070903
  Receipt Date: 20070830
  Transmission Date: 20080115
  Serious: Yes (Life-Threatening, Hospitalization)
  Sender: FDA-Public Use
  Company Number: PHBS2007CH14321

PATIENT
  Age: 86 Year
  Sex: Female

DRUGS (7)
  1. NITRODERM [Suspect]
     Indication: HYPERTENSION
     Dosage: 1 PATCH/DAY
     Route: 062
     Dates: start: 20070727, end: 20070730
  2. DILATREND [Suspect]
     Dosage: 25 MG/DAY
  3. ADALAT - SLOW RELEASE [Suspect]
     Dosage: 40 MG/DAY
  4. RENITEN [Suspect]
     Dosage: 10 MG/DAY
  5. ASPIRIN [Suspect]
     Dosage: 100 MG/DAY
  6. LASIX [Suspect]
     Dosage: 40 MG/DAY
  7. SORTIS [Suspect]
     Dosage: 10 MG/DAY

REACTIONS (10)
  - ANAPHYLACTIC REACTION [None]
  - BRONCHOSPASM [None]
  - CONDITION AGGRAVATED [None]
  - HYPOTENSION [None]
  - INTUBATION [None]
  - MALAISE [None]
  - RESPIRATORY FAILURE [None]
  - STRIDOR [None]
  - TACHYPNOEA [None]
  - URTICARIA [None]
